FAERS Safety Report 9125356 (Version 1)
Quarter: 2013Q1

REPORT INFORMATION
  Report Type: Spontaneous
  Country: US (occurrence: US)
  Receive Date: 20130117
  Receipt Date: 20130117
  Transmission Date: 20140127
  Serious: No
  Sender: FDA-Public Use
  Company Number: US-BRISTOL-MYERS SQUIBB COMPANY-17002619

PATIENT
  Age: 46 Year
  Sex: Female
  Weight: 84.8 kg

DRUGS (4)
  1. YERVOY [Suspect]
     Indication: MALIGNANT MELANOMA
     Dates: start: 20120925
  2. ZYRTEC [Concomitant]
  3. OMEPRAZOLE [Concomitant]
  4. SYNTHROID [Concomitant]
     Dates: start: 20120925

REACTIONS (7)
  - Hot flush [Unknown]
  - Night sweats [Unknown]
  - Oestradiol decreased [Unknown]
  - Blood follicle stimulating hormone increased [Unknown]
  - Blood thyroid stimulating hormone increased [Unknown]
  - Skin irritation [Recovering/Resolving]
  - Blood cortisol decreased [Unknown]
